FAERS Safety Report 25404308 (Version 1)
Quarter: 2025Q2

REPORT INFORMATION
  Report Type: Spontaneous
  Country: US (occurrence: US)
  Receive Date: 20250606
  Receipt Date: 20250606
  Transmission Date: 20250716
  Serious: Yes (Other)
  Sender: COOPERSURGICAL
  Company Number: US-COOPERSURGICAL, INC.-2025CPS004506

PATIENT
  Age: 28 Year
  Sex: Female
  Weight: 58.05 kg

DRUGS (1)
  1. PARAGARD T 380A [Suspect]
     Active Substance: COPPER
     Indication: Contraception
     Route: 015
     Dates: start: 20110624

REACTIONS (29)
  - Reproductive complication associated with device [Unknown]
  - Device allergy [Recovered/Resolved]
  - Hepatic failure [Not Recovered/Not Resolved]
  - Renal failure [Recovered/Resolved]
  - Encephalopathy [Not Recovered/Not Resolved]
  - Injury [Unknown]
  - Multiple organ dysfunction syndrome [Not Recovered/Not Resolved]
  - Haematotoxicity [Recovered/Resolved]
  - Device breakage [Not Recovered/Not Resolved]
  - Foreign body in reproductive tract [Not Recovered/Not Resolved]
  - Complication of device removal [Not Recovered/Not Resolved]
  - Syncope [Not Recovered/Not Resolved]
  - Procedural pain [Recovered/Resolved]
  - Bacterial infection [Unknown]
  - Asthenia [Not Recovered/Not Resolved]
  - Hormone level abnormal [Recovered/Resolved]
  - Jaundice [Recovered/Resolved]
  - Post-traumatic stress disorder [Unknown]
  - Muscle atrophy [Unknown]
  - Cyst [Unknown]
  - Weight decreased [Unknown]
  - Memory impairment [Unknown]
  - Candida infection [Unknown]
  - General physical health deterioration [Unknown]
  - Device material issue [Not Recovered/Not Resolved]
  - Menstruation irregular [Unknown]
  - Pelvic pain [Unknown]
  - Amenorrhoea [Unknown]
  - Unevaluable event [Unknown]

NARRATIVE: CASE EVENT DATE: 20210211
